FAERS Safety Report 25447731 (Version 2)
Quarter: 2025Q3

REPORT INFORMATION
  Report Type: Spontaneous
  Country: EU (occurrence: EU)
  Receive Date: 20250617
  Receipt Date: 20250701
  Transmission Date: 20251020
  Serious: Yes (Other)
  Sender: MYLAN
  Company Number: EU-002147023-NVSC2025CZ089904

PATIENT
  Sex: Female
  Weight: 32 kg

DRUGS (1)
  1. FINGOLIMOD [Suspect]
     Active Substance: FINGOLIMOD
     Indication: Multiple sclerosis

REACTIONS (4)
  - Spinal cord injury [Unknown]
  - Lhermitte^s sign [Unknown]
  - Multiple sclerosis [Unknown]
  - Disease progression [Unknown]

NARRATIVE: CASE EVENT DATE: 20230701
